FAERS Safety Report 19112364 (Version 2)
Quarter: 2021Q4

REPORT INFORMATION
  Report Type: Spontaneous
  Country: US (occurrence: None)
  Receive Date: 20210409
  Receipt Date: 20211125
  Transmission Date: 20220303
  Serious: Yes (Other)
  Sender: FDA-Public Use
  Company Number: 2021A258348

PATIENT
  Age: 62 Year
  Sex: Female
  Weight: 122.5 kg

DRUGS (37)
  1. NEXIUM [Suspect]
     Active Substance: ESOMEPRAZOLE MAGNESIUM
     Indication: Gastrooesophageal reflux disease
     Route: 048
     Dates: start: 1989, end: 2019
  2. NEXIUM [Suspect]
     Active Substance: ESOMEPRAZOLE MAGNESIUM
     Indication: Gastrooesophageal reflux disease
     Route: 048
     Dates: start: 2001, end: 2019
  3. PRILOSEC [Suspect]
     Active Substance: OMEPRAZOLE MAGNESIUM
     Indication: Gastrooesophageal reflux disease
     Route: 048
     Dates: start: 1989, end: 2019
  4. PREVACID [Suspect]
     Active Substance: LANSOPRAZOLE
     Indication: Gastrooesophageal reflux disease
     Route: 065
     Dates: start: 1989, end: 2019
  5. PREVACID [Suspect]
     Active Substance: LANSOPRAZOLE
     Indication: Gastrooesophageal reflux disease
     Route: 065
     Dates: start: 1995
  6. PREVACID 24 HR [Suspect]
     Active Substance: LANSOPRAZOLE
     Indication: Gastrooesophageal reflux disease
     Route: 065
     Dates: start: 2009, end: 2018
  7. PROTONIX [Suspect]
     Active Substance: PANTOPRAZOLE SODIUM
     Indication: Gastrooesophageal reflux disease
     Route: 065
     Dates: start: 1989, end: 2019
  8. PROTONIX [Suspect]
     Active Substance: PANTOPRAZOLE SODIUM
     Indication: Gastrooesophageal reflux disease
     Route: 065
     Dates: start: 2000, end: 2019
  9. DIOVAN [Concomitant]
     Active Substance: VALSARTAN
  10. PATANOL [Concomitant]
     Active Substance: OLOPATADINE HYDROCHLORIDE
  11. ZITHROMAX [Concomitant]
     Active Substance: AZITHROMYCIN DIHYDRATE
  12. NOVOLIN NOS [Concomitant]
     Active Substance: INSULIN HUMAN
  13. LEVEMIR [Concomitant]
     Active Substance: INSULIN DETEMIR
  14. PROAIR HFA [Concomitant]
     Active Substance: ALBUTEROL SULFATE
  15. CYCLOBENZAPRINE [Concomitant]
     Active Substance: CYCLOBENZAPRINE
  16. ALBUTEROL [Concomitant]
     Active Substance: ALBUTEROL
  17. AMITIZA [Concomitant]
     Active Substance: LUBIPROSTONE
  18. BACTRIM [Concomitant]
     Active Substance: SULFAMETHOXAZOLE\TRIMETHOPRIM
  19. LYRICA [Concomitant]
     Active Substance: PREGABALIN
  20. PYRIDIUM [Concomitant]
     Active Substance: PHENAZOPYRIDINE
  21. LASIX [Concomitant]
     Active Substance: FUROSEMIDE
     Indication: Oedema
  22. FOLIC ACID [Concomitant]
     Active Substance: FOLIC ACID
  23. LACTULOSE [Concomitant]
     Active Substance: LACTULOSE
  24. NORVASC [Concomitant]
     Active Substance: AMLODIPINE BESYLATE
  25. TRULICITY [Concomitant]
     Active Substance: DULAGLUTIDE
  26. CARAFATE [Concomitant]
     Active Substance: SUCRALFATE
  27. ELIQUIS [Concomitant]
     Active Substance: APIXABAN
  28. VITAMIN D3 [Concomitant]
     Active Substance: CHOLECALCIFEROL
  29. TOPROL XL [Concomitant]
     Active Substance: METOPROLOL SUCCINATE
  30. OLMESARTAN [Concomitant]
     Active Substance: OLMESARTAN
     Indication: Hypertension
  31. AMOXICILLIN [Concomitant]
     Active Substance: AMOXICILLIN
     Indication: Antibiotic therapy
  32. BENADRYL [Concomitant]
     Active Substance: DIPHENHYDRAMINE HYDROCHLORIDE
     Indication: Hypersensitivity
  33. ALEVE [Concomitant]
     Active Substance: NAPROXEN SODIUM
     Indication: Pain
  34. IBUPROFEN [Concomitant]
     Active Substance: IBUPROFEN
     Indication: Pain
  35. ZANTAC [Concomitant]
     Active Substance: RANITIDINE HYDROCHLORIDE
  36. TUMS [Concomitant]
     Active Substance: CALCIUM CARBONATE
  37. ALKA-SELTZER [Concomitant]
     Active Substance: ANHYDROUS CITRIC ACID\ASPIRIN\SODIUM BICARBONATE

REACTIONS (2)
  - Chronic kidney disease [Not Recovered/Not Resolved]
  - Gastrooesophageal reflux disease [Not Recovered/Not Resolved]

NARRATIVE: CASE EVENT DATE: 20180101
